FAERS Safety Report 6508492-9 (Version None)
Quarter: 2009Q4

REPORT INFORMATION
  Report Type: 
  Country: None (occurrence: None)
  Receive Date: 20091221
  Receipt Date: 20090105
  Transmission Date: 20100525
  Serious: No
  Sender: FDA-Public Use
  Company Number: US-ASTRAZENECA-2008UW26385

PATIENT
  Age: 51 Year
  Sex: Female
  Weight: 59 kg

DRUGS (5)
  1. CRESTOR [Suspect]
     Indication: BLOOD CHOLESTEROL INCREASED
     Route: 048
     Dates: start: 20081111, end: 20081209
  2. CRESTOR [Suspect]
     Route: 048
     Dates: start: 20081210
  3. ALLEGRA [Concomitant]
  4. PULMICORT FLEXHALER [Concomitant]
     Route: 055
  5. LEVOXYL [Concomitant]

REACTIONS (1)
  - SKIN BURNING SENSATION [None]
